FAERS Safety Report 11703636 (Version 1)
Quarter: 2015Q4

REPORT INFORMATION
  Report Type: Spontaneous
  Country: IR (occurrence: IR)
  Receive Date: 20151106
  Receipt Date: 20151106
  Transmission Date: 20160304
  Serious: Yes (Hospitalization, Other)
  Sender: FDA-Public Use
  Company Number: IR-WATSON-2015-22369

PATIENT
  Age: 47 Year
  Sex: Male

DRUGS (1)
  1. DEXAMETHASONE (UNKNOWN) [Suspect]
     Active Substance: DEXAMETHASONE
     Indication: DRUG ABUSE
     Dosage: UNK UNK, DAILY
     Route: 030

REACTIONS (2)
  - Drug abuse [Recovered/Resolved]
  - Myocarditis [Recovered/Resolved]
